FAERS Safety Report 7219743-X (Version None)
Quarter: 2011Q1

REPORT INFORMATION
  Report Type: 
  Country: None (occurrence: None)
  Receive Date: 20110111
  Receipt Date: 20101129
  Transmission Date: 20110831
  Serious: Yes (Death, Other)
  Sender: FDA-Public Use
  Company Number: US-BAXTER-2010BH003522

PATIENT
  Age: 65 Year
  Sex: Male

DRUGS (54)
  1. HEPARIN SODIUM INJECTION [Suspect]
     Indication: FASCIOTOMY
     Route: 042
     Dates: start: 20080515, end: 20080515
  2. HEPARIN SODIUM INJECTION [Suspect]
     Route: 042
     Dates: start: 20080515, end: 20080515
  3. HEPARIN SODIUM INJECTION [Suspect]
     Route: 042
     Dates: start: 20080515, end: 20080515
  4. HEPARIN SODIUM INJECTION [Suspect]
     Route: 042
     Dates: start: 20080515, end: 20080515
  5. ARGATROBAN [Suspect]
     Route: 042
     Dates: start: 20080518, end: 20080501
  6. NITROGLYCERIN ^A.L.^ [Concomitant]
     Indication: PRODUCT USED FOR UNKNOWN INDICATION
     Route: 065
  7. SODIUM CHLORIDE [Concomitant]
     Indication: PRODUCT USED FOR UNKNOWN INDICATION
     Route: 042
  8. HEPARIN SODIUM INJECTION [Suspect]
     Route: 042
     Dates: start: 20080515, end: 20080515
  9. HEPARIN SODIUM INJECTION [Suspect]
     Route: 042
     Dates: start: 20080515, end: 20080515
  10. HEPARIN SODIUM INJECTION [Suspect]
     Route: 042
     Dates: start: 20080515, end: 20080515
  11. HEPARIN SODIUM INJECTION [Suspect]
     Route: 042
     Dates: start: 20080515, end: 20080515
  12. VASELINE [Concomitant]
     Indication: LIP DRY
     Route: 065
  13. ALUMINUM HYDROXIDE GEL [Concomitant]
     Indication: PRODUCT USED FOR UNKNOWN INDICATION
     Route: 065
  14. LIDOCAINE HYDROCHLORIDE IN PLASTIC CONTAINER [Concomitant]
     Route: 065
  15. NEURONTIN [Concomitant]
     Indication: PRODUCT USED FOR UNKNOWN INDICATION
     Route: 065
  16. HEPARIN SODIUM INJECTION [Suspect]
     Indication: AORTIC ANEURYSM REPAIR
     Route: 042
     Dates: start: 20080515, end: 20080515
  17. HEPARIN SODIUM INJECTION [Suspect]
     Indication: AORTIC BYPASS
     Route: 042
     Dates: start: 20080515, end: 20080515
  18. HEPARIN SODIUM INJECTION [Suspect]
     Route: 042
     Dates: start: 20080515, end: 20080515
  19. TITRATE [Concomitant]
     Indication: PRODUCT USED FOR UNKNOWN INDICATION
     Route: 065
  20. CALCIUM CHLORIDE ^BIOTIKA^ [Concomitant]
     Indication: PRODUCT USED FOR UNKNOWN INDICATION
     Route: 065
  21. ASPIRIN [Concomitant]
     Route: 065
  22. POTASSIUM CHLORIDE [Concomitant]
     Indication: PRODUCT USED FOR UNKNOWN INDICATION
     Route: 042
  23. LABETALOL [Concomitant]
     Indication: PRODUCT USED FOR UNKNOWN INDICATION
     Route: 065
  24. HEPARIN SODIUM INJECTION [Suspect]
     Route: 042
     Dates: start: 20080515, end: 20080515
  25. HEPARIN SODIUM INJECTION [Suspect]
     Route: 042
     Dates: start: 20080515, end: 20080515
  26. HEPARIN SODIUM INJECTION [Suspect]
     Route: 042
     Dates: start: 20080515, end: 20080515
  27. FUROSEMIDE [Concomitant]
     Indication: PRODUCT USED FOR UNKNOWN INDICATION
     Route: 065
  28. MIDAZOLAM HCL [Concomitant]
     Indication: PRODUCT USED FOR UNKNOWN INDICATION
     Route: 065
  29. ATORVASTATIN [Concomitant]
     Indication: PRODUCT USED FOR UNKNOWN INDICATION
     Route: 065
  30. HEPARIN SODIUM INJECTION [Suspect]
     Indication: ENDARTERECTOMY
     Route: 042
     Dates: start: 20080515, end: 20080515
  31. HEPARIN SODIUM INJECTION [Suspect]
     Indication: PERIPHERAL ARTERY ANGIOPLASTY
     Route: 042
     Dates: start: 20080515, end: 20080515
  32. HEPARIN SODIUM INJECTION [Suspect]
     Route: 042
     Dates: start: 20080515, end: 20080515
  33. ARGATROBAN [Suspect]
     Indication: PRODUCT USED FOR UNKNOWN INDICATION
     Route: 042
     Dates: start: 20080515, end: 20080501
  34. ASPIRIN [Concomitant]
     Indication: PRODUCT USED FOR UNKNOWN INDICATION
     Route: 065
  35. PROXIMAL PORT [Concomitant]
     Indication: PRODUCT USED FOR UNKNOWN INDICATION
     Route: 065
  36. LIDOCAINE HYDROCHLORIDE IN PLASTIC CONTAINER [Concomitant]
     Indication: PRODUCT USED FOR UNKNOWN INDICATION
     Route: 065
  37. FENTANYL [Concomitant]
     Indication: PRODUCT USED FOR UNKNOWN INDICATION
     Route: 065
  38. HEPARIN SODIUM INJECTION [Suspect]
     Indication: THROMBOEMBOLECTOMY
     Route: 042
     Dates: start: 20080515, end: 20080515
  39. FAMOTIDINE [Concomitant]
     Indication: PRODUCT USED FOR UNKNOWN INDICATION
     Route: 065
  40. CEFAZOLIN [Concomitant]
     Indication: PRODUCT USED FOR UNKNOWN INDICATION
     Route: 042
  41. SODIUM BICARBONATE [Concomitant]
     Indication: PRODUCT USED FOR UNKNOWN INDICATION
     Route: 065
  42. BUPROPION [Concomitant]
     Indication: PRODUCT USED FOR UNKNOWN INDICATION
     Route: 065
  43. HEPARIN SODIUM INJECTION [Suspect]
     Route: 042
     Dates: start: 20080515, end: 20080515
  44. HEPARIN SODIUM INJECTION [Suspect]
     Route: 042
     Dates: start: 20080515, end: 20080515
  45. HEPARIN SODIUM INJECTION [Suspect]
     Route: 042
     Dates: start: 20080515, end: 20080515
  46. LACRI-LUBE [Concomitant]
     Indication: DRY EYE
     Route: 065
  47. HETASTARCH 6% IN 0.9% SODIUM CHLORIDE IN PLASTIC CONTAINER [Concomitant]
     Indication: PRODUCT USED FOR UNKNOWN INDICATION
     Route: 065
  48. ACETAMINOPHEN [Concomitant]
     Indication: PRODUCT USED FOR UNKNOWN INDICATION
     Route: 065
  49. MORPHINE [Concomitant]
     Indication: PRODUCT USED FOR UNKNOWN INDICATION
     Route: 065
  50. HEPARIN SODIUM INJECTION [Suspect]
     Route: 042
     Dates: start: 20080515, end: 20080515
  51. HEPARIN SODIUM INJECTION [Suspect]
     Route: 042
     Dates: start: 20080515, end: 20080515
  52. HEPARIN SODIUM INJECTION [Suspect]
     Route: 042
     Dates: start: 20080515, end: 20080515
  53. MIDAZOLAM HCL [Concomitant]
     Route: 065
  54. MAGNESIUM SULFATE [Concomitant]
     Indication: PRODUCT USED FOR UNKNOWN INDICATION
     Route: 065

REACTIONS (20)
  - PERIPHERAL VASCULAR DISORDER [None]
  - RHABDOMYOLYSIS [None]
  - DYSPNOEA [None]
  - SKIN DISCOLOURATION [None]
  - HYPOTENSION [None]
  - UNRESPONSIVE TO STIMULI [None]
  - HAEMORRHAGE [None]
  - HEPATIC FAILURE [None]
  - SHOCK [None]
  - CIRCULATORY COLLAPSE [None]
  - HEPARIN-INDUCED THROMBOCYTOPENIA [None]
  - ATRIAL FIBRILLATION [None]
  - COAGULOPATHY [None]
  - VASCULAR GRAFT THROMBOSIS [None]
  - RENAL FAILURE ACUTE [None]
  - THROMBOSIS IN DEVICE [None]
  - MULTI-ORGAN FAILURE [None]
  - LACTIC ACIDOSIS [None]
  - HYPERKALAEMIA [None]
  - MOUTH HAEMORRHAGE [None]
